FAERS Safety Report 15635650 (Version 3)
Quarter: 2019Q1

REPORT INFORMATION
  Report Type: Spontaneous
  Country: US (occurrence: US)
  Receive Date: 20181120
  Receipt Date: 20190108
  Transmission Date: 20190417
  Serious: Yes (Disabling)
  Sender: FDA-Public Use
  Company Number: US-009507513-1811USA006885

PATIENT
  Sex: Female
  Weight: 61.22 kg

DRUGS (3)
  1. SINGULAIR [Suspect]
     Active Substance: MONTELUKAST SODIUM
     Indication: ASTHMA
     Dosage: 5 MILLIGRAM, DAILY
     Route: 048
     Dates: start: 20140421, end: 20181103
  2. ASMANEX [Concomitant]
     Active Substance: MOMETASONE FUROATE
     Indication: ASTHMA
     Dosage: ONE-TWO PUFFS DAILY
     Route: 055
     Dates: start: 2015
  3. SINGULAIR [Suspect]
     Active Substance: MONTELUKAST SODIUM
     Indication: HYPERSENSITIVITY

REACTIONS (6)
  - Depression [Recovered/Resolved]
  - Presyncope [Unknown]
  - Muscle twitching [Recovered/Resolved]
  - Anxiety [Recovering/Resolving]
  - Dizziness [Unknown]
  - Tic [Recovered/Resolved]

NARRATIVE: CASE EVENT DATE: 2015
